FAERS Safety Report 7176151-8 (Version None)
Quarter: 2010Q4

REPORT INFORMATION
  Report Type: 
  Country: None (occurrence: None)
  Receive Date: 20101220
  Receipt Date: 20101207
  Transmission Date: 20110411
  Serious: No
  Sender: FDA-Public Use
  Company Number: US-BIOGENIDEC-2010BI043454

PATIENT
  Sex: Female

DRUGS (5)
  1. TYSABRI [Suspect]
     Indication: MULTIPLE SCLEROSIS
     Route: 042
     Dates: start: 20080409, end: 20080827
  2. AVONEX [Concomitant]
     Indication: MULTIPLE SCLEROSIS
     Route: 030
     Dates: end: 20080224
  3. AVONEX [Concomitant]
     Route: 030
     Dates: start: 20040803, end: 20051014
  4. AVONEX [Concomitant]
     Route: 030
     Dates: start: 20000124
  5. AVONEX [Concomitant]
     Route: 030
     Dates: start: 20090901

REACTIONS (19)
  - ALOPECIA [None]
  - BACK PAIN [None]
  - BALANCE DISORDER [None]
  - COORDINATION ABNORMAL [None]
  - FALL [None]
  - FOOT FRACTURE [None]
  - GAIT DISTURBANCE [None]
  - HYPOTONIA [None]
  - LOSS OF CONTROL OF LEGS [None]
  - MUSCLE INJURY [None]
  - MUSCULAR WEAKNESS [None]
  - MUSCULOSKELETAL DISORDER [None]
  - NERVOUSNESS [None]
  - OSTEOPOROSIS [None]
  - PAIN IN EXTREMITY [None]
  - PERONEAL NERVE PALSY [None]
  - SENSORY DISTURBANCE [None]
  - STRESS [None]
  - URINARY INCONTINENCE [None]
